FAERS Safety Report 5964267-0 (Version None)
Quarter: 2008Q4

REPORT INFORMATION
  Report Type: 
  Country: None (occurrence: None)
  Receive Date: 20081124
  Receipt Date: 20081114
  Transmission Date: 20090506
  Serious: Yes (Hospitalization)
  Sender: FDA-Public Use
  Company Number: JP-ABBOTT-08P-087-0485195-00

PATIENT
  Sex: Female
  Weight: 45.9 kg

DRUGS (6)
  1. HUMIRA [Suspect]
     Indication: RHEUMATOID ARTHRITIS
     Route: 058
     Dates: start: 20080821
  2. HUMIRA [Suspect]
  3. METHOTREXATE [Suspect]
     Indication: RHEUMATOID ARTHRITIS
  4. PREDNISOLONE SODIUM PHOSPHATE [Suspect]
     Indication: RHEUMATOID ARTHRITIS
     Dosage: 5 MG DAILY
  5. CELECOXIB [Concomitant]
     Indication: RHEUMATOID ARTHRITIS
     Dosage: 200 MG DAILY
  6. RISEDRONATE SODIUM [Concomitant]
     Indication: DRUG USE FOR UNKNOWN INDICATION
     Dosage: 2.5 MG DAILY

REACTIONS (2)
  - HYPERKERATOSIS [None]
  - PURULENT DISCHARGE [None]
